FAERS Safety Report 7651980-2 (Version None)
Quarter: 2011Q3

REPORT INFORMATION
  Report Type: 
  Country: None (occurrence: None)
  Receive Date: 20110803
  Receipt Date: 20110725
  Transmission Date: 20111222
  Serious: No
  Sender: FDA-Public Use
  Company Number: US-BIOGENIDEC-2011BI027805

PATIENT
  Age: 61 Year
  Sex: Female

DRUGS (2)
  1. BLOOD PRESSURE MEDICINE [Concomitant]
     Indication: PRODUCT USED FOR UNKNOWN INDICATION
     Dates: start: 20100601
  2. TYSABRI [Suspect]
     Indication: MULTIPLE SCLEROSIS
     Route: 042
     Dates: start: 20070521

REACTIONS (2)
  - NEUROPATHY PERIPHERAL [None]
  - ASTHENIA [None]
